FAERS Safety Report 4287352-0 (Version None)
Quarter: 2004Q1

REPORT INFORMATION
  Report Type: 
  Country: None (occurrence: None)
  Receive Date: 20040205
  Receipt Date: 20020617
  Transmission Date: 20041129
  Serious: Yes (Hospitalization)
  Sender: FDA-Public Use
  Company Number: B01200201276

PATIENT
  Age: 52 Year
  Sex: Female

DRUGS (4)
  1. (CLOPIDOGREL / ASPIRIN) - TABLET - UNIT DOSE : UNKNOWN / TABLET - UNIT [Suspect]
     Indication: ISCHAEMIC STROKE
     Dosage: 75 MG CLOPIDOGREL + 75 MG ASPIRIN DAILY / 75 MG CLOPIDOGREL + 75 MG ASPIRIN DAILY ORAL
     Route: 048
     Dates: start: 20011115, end: 20020610
  2. (CLOPIDOGREL / ASPIRIN) - TABLET - UNIT DOSE : UNKNOWN / TABLET - UNIT [Suspect]
     Indication: TRANSIENT ISCHAEMIC ATTACK
     Dosage: 75 MG CLOPIDOGREL + 75 MG ASPIRIN DAILY / 75 MG CLOPIDOGREL + 75 MG ASPIRIN DAILY ORAL
     Route: 048
     Dates: start: 20011115, end: 20020610
  3. (CLOPIDOGREL / ASPIRIN) - TABLET - UNIT DOSE : UNKNOWN / TABLET - UNIT [Suspect]
     Indication: ISCHAEMIC STROKE
     Dosage: 75 MG CLOPIDOGREL + 75 MG ASPIRIN DAILY / 75 MG CLOPIDOGREL + 75 MG ASPIRIN DAILY ORAL
     Route: 048
     Dates: end: 20020809
  4. (CLOPIDOGREL / ASPIRIN) - TABLET - UNIT DOSE : UNKNOWN / TABLET - UNIT [Suspect]
     Indication: TRANSIENT ISCHAEMIC ATTACK
     Dosage: 75 MG CLOPIDOGREL + 75 MG ASPIRIN DAILY / 75 MG CLOPIDOGREL + 75 MG ASPIRIN DAILY ORAL
     Route: 048
     Dates: end: 20020809

REACTIONS (6)
  - BUNDLE BRANCH BLOCK LEFT [None]
  - ELECTROCARDIOGRAM ABNORMAL [None]
  - ENDOMETRIAL HYPERPLASIA [None]
  - GENITAL HAEMORRHAGE [None]
  - HAEMOGLOBIN DECREASED [None]
  - VAGINAL HAEMORRHAGE [None]
